FAERS Safety Report 16138369 (Version 1)
Quarter: 2019Q1

REPORT INFORMATION
  Report Type: Spontaneous
  Country: US (occurrence: US)
  Receive Date: 20190330
  Receipt Date: 20190330
  Transmission Date: 20190418
  Serious: Yes (Hospitalization, Other)
  Sender: FDA-Public Use
  Company Number: US-AXELLIA-002363

PATIENT
  Age: 65 Year
  Sex: Male
  Weight: 113.4 kg

DRUGS (31)
  1. OXYGEN. [Concomitant]
     Active Substance: OXYGEN
     Dates: start: 20150923
  2. BERAPROST/BERAPROST SODIUM [Suspect]
     Active Substance: BERAPROST SODIUM
     Indication: PULMONARY ARTERIAL HYPERTENSION
     Route: 048
     Dates: start: 20160113
  3. TRULICITY [Concomitant]
     Active Substance: DULAGLUTIDE
     Dates: start: 20180306
  4. LORAZEPAM. [Concomitant]
     Active Substance: LORAZEPAM
     Dates: start: 20151005
  5. CALCIUM CITRATE [Concomitant]
     Active Substance: CALCIUM CITRATE
  6. TYVASO [Suspect]
     Active Substance: TREPROSTINIL
     Indication: PULMONARY ARTERIAL HYPERTENSION
     Dosage: FREQUENCY: ONCE DAILY (STRENGHT: 0.6 ML)
     Dates: start: 20130918
  7. HUMALOG [Concomitant]
     Active Substance: INSULIN LISPRO
  8. VENLAFAXINE/VENLAFAXINE HYDROCHLORIDE [Concomitant]
     Dates: start: 2002
  9. CRESTOR [Concomitant]
     Active Substance: ROSUVASTATIN CALCIUM
  10. OPSUMIT [Concomitant]
     Active Substance: MACITENTAN
     Dates: start: 2014
  11. LOPERAMIDE [Concomitant]
     Active Substance: LOPERAMIDE
     Dates: start: 1990
  12. MAGNESIUM HYDROXIDE. [Concomitant]
     Active Substance: MAGNESIUM HYDROXIDE
     Dates: start: 20170915
  13. SALBUTAMOL [Concomitant]
     Active Substance: ALBUTEROL
     Dates: start: 20150317
  14. GABAPENTIN. [Concomitant]
     Active Substance: GABAPENTIN
     Dates: start: 20160115
  15. VANCOMYCIN [Suspect]
     Active Substance: VANCOMYCIN
     Indication: SEPSIS
  16. ADCIRCA [Concomitant]
     Active Substance: TADALAFIL
     Dates: start: 2013
  17. AMBIEN [Concomitant]
     Active Substance: ZOLPIDEM TARTRATE
     Dates: start: 2012
  18. CENTRUM SILVER [Concomitant]
     Active Substance: MINERALS\VITAMINS
     Dates: start: 2015
  19. SULFAMETHOXAZOLE/SULFAMETHOXAZOLE SODIUM [Concomitant]
  20. CEFALEXIN [Concomitant]
     Active Substance: CEPHALEXIN
  21. ALLEGRA [Concomitant]
     Active Substance: FEXOFENADINE HYDROCHLORIDE
  22. KEPPRA [Concomitant]
     Active Substance: LEVETIRACETAM
     Dates: start: 20160507
  23. OMEPRAZOLE. [Concomitant]
     Active Substance: OMEPRAZOLE
     Dates: start: 2006
  24. BISOPROLOL [Concomitant]
     Active Substance: BISOPROLOL
     Dates: start: 1990
  25. HYDROCODONE/HYDROCODONE BITARTRATE/HYDROCODONE HYDROCHLORIDE/HYDROCODONE POLISTIREX [Concomitant]
     Dates: start: 20150916
  26. BISMUTH. [Concomitant]
     Active Substance: BISMUTH
     Dates: start: 20160212
  27. LACHYDRIN [Concomitant]
     Dates: start: 2007
  28. IRON [Concomitant]
     Active Substance: IRON
     Dates: start: 2006
  29. FISH OIL [Concomitant]
     Active Substance: FISH OIL
     Dates: start: 20150526
  30. LANTUS [Concomitant]
     Active Substance: INSULIN GLARGINE
     Dates: start: 2008
  31. WELLBUTRIN [Concomitant]
     Active Substance: BUPROPION HYDROCHLORIDE

REACTIONS (13)
  - Tachycardia [Recovered/Resolved]
  - Malaise [Recovered/Resolved]
  - Nephropathy toxic [Unknown]
  - Gangrene [Recovered/Resolved with Sequelae]
  - Sepsis [Recovering/Resolving]
  - Acute kidney injury [Unknown]
  - Osteomyelitis [Unknown]
  - Pyrexia [Recovered/Resolved]
  - Localised infection [Unknown]
  - Diarrhoea [Recovered/Resolved]
  - Chest pain [Unknown]
  - Vomiting [Recovered/Resolved]
  - Drug eruption [Unknown]

NARRATIVE: CASE EVENT DATE: 2018
